FAERS Safety Report 8169759-4 (Version None)
Quarter: 2012Q1

REPORT INFORMATION
  Report Type: 
  Country: None (occurrence: None)
  Receive Date: 20120228
  Receipt Date: 20120227
  Transmission Date: 20120608
  Serious: Yes (Death)
  Sender: FDA-Public Use
  Company Number: CH-JNJFOC-20120212897

PATIENT
  Age: 20 Year
  Sex: Male

DRUGS (2)
  1. FENTANYL-100 [Suspect]
     Route: 065
  2. FENTANYL-100 [Suspect]
     Indication: BACK PAIN
     Route: 065

REACTIONS (1)
  - DEATH [None]
